FAERS Safety Report 10027234 (Version 1)
Quarter: 2014Q1

REPORT INFORMATION
  Report Type: Spontaneous
  Country: US (occurrence: US)
  Receive Date: 20140321
  Receipt Date: 20140321
  Transmission Date: 20141002
  Serious: No
  Sender: FDA-Public Use
  Company Number: US-TEVA-455183USA

PATIENT
  Sex: 0

DRUGS (1)
  1. ETOPOSIDE [Suspect]

REACTIONS (4)
  - Adverse drug reaction [Unknown]
  - Flushing [Unknown]
  - Dyspnoea [Unknown]
  - Product quality issue [Unknown]
